FAERS Safety Report 4286890-4 (Version None)
Quarter: 2004Q1

REPORT INFORMATION
  Report Type: 
  Country: None (occurrence: None)
  Receive Date: 20040121
  Receipt Date: 20030818
  Transmission Date: 20041129
  Serious: Yes (Other)
  Sender: FDA-Public Use
  Company Number: A03200301910

PATIENT
  Age: 70 Year
  Sex: Female
  Weight: 63.05 kg

DRUGS (5)
  1. PLAVIX [Suspect]
     Indication: PROPHYLAXIS
     Dosage: 375 MG LOADING DOSE ONCE AND THEN 75 MG QD THEREAFTER  - ORAL
     Route: 048
     Dates: start: 20030625, end: 20030626
  2. LISINOPRIL [Concomitant]
  3. BISOPROLOL FUMARATE AND HYDROCHLOROTHIAZIDE [Concomitant]
  4. TRIAMTERENE AND HYDROCHLOROTHIAZIDE [Concomitant]
  5. ACETYLSALICYLIC ACID SRT [Concomitant]

REACTIONS (2)
  - ANAEMIA [None]
  - GASTROINTESTINAL HAEMORRHAGE [None]
